FAERS Safety Report 17544513 (Version 3)
Quarter: 2020Q2

REPORT INFORMATION
  Report Type: Spontaneous
  Country: DE (occurrence: DE)
  Receive Date: 20200316
  Receipt Date: 20200501
  Transmission Date: 20200713
  Serious: Yes (Disabling, Congenital Anomaly, Other)
  Sender: FDA-Public Use
  Company Number: DE-PFIZER INC-2020106086

PATIENT
  Age: 4 Week
  Sex: Male
  Weight: 4.3 kg

DRUGS (1)
  1. CYTOTEC [Suspect]
     Active Substance: MISOPROSTOL
     Indication: LABOUR INDUCTION
     Dosage: 1 TABLET
     Route: 064
     Dates: start: 20061207, end: 20061207

REACTIONS (10)
  - Amniocentesis abnormal [Not Recovered/Not Resolved]
  - Mental disability [Recovered/Resolved with Sequelae]
  - Developmental delay [Not Recovered/Not Resolved]
  - Cyanosis neonatal [Not Recovered/Not Resolved]
  - Dyspraxia [Recovered/Resolved with Sequelae]
  - Neonatal hypoxia [Not Recovered/Not Resolved]
  - Apgar score low [Not Recovered/Not Resolved]
  - Foetal exposure during delivery [Unknown]
  - Disability [Recovered/Resolved with Sequelae]
  - Tic [Recovered/Resolved with Sequelae]

NARRATIVE: CASE EVENT DATE: 20061207
